FAERS Safety Report 20975353 (Version 2)
Quarter: 2022Q4

REPORT INFORMATION
  Report Type: Report from Study
  Country: IT (occurrence: IT)
  Receive Date: 20220617
  Receipt Date: 20221129
  Transmission Date: 20230112
  Serious: Yes (Death, Other)
  Sender: FDA-Public Use
  Company Number: IT-PFIZER INC-202200812130

PATIENT

DRUGS (14)
  1. DOXORUBICIN HYDROCHLORIDE [Suspect]
     Active Substance: DOXORUBICIN HYDROCHLORIDE
     Indication: Burkitt^s lymphoma
     Dosage: 50 MG/M2 (DAY 29 INDUCTION DOSE)
     Route: 040
  2. CYTARABINE [Suspect]
     Active Substance: CYTARABINE
     Indication: Burkitt^s lymphoma
     Dosage: 50 MG ON DAYS 5, 19 AND 33
     Route: 037
  3. METHOTREXATE SODIUM [Suspect]
     Active Substance: METHOTREXATE SODIUM
     Indication: Burkitt^s lymphoma
     Dosage: 3 G/M2 IV. OVER 6 HOURS DAY 7 INDUCTION DOSE
     Route: 042
  4. METHOTREXATE SODIUM [Suspect]
     Active Substance: METHOTREXATE SODIUM
     Dosage: 3 G/M2 IV. OVER 6 HOURS DAY 21 INDUCTION DOSE
     Route: 042
  5. METHOTREXATE SODIUM [Suspect]
     Active Substance: METHOTREXATE SODIUM
     Indication: Burkitt^s lymphoma
     Dosage: 12 MG ON DAY 5, 19 AND 33
  6. RITUXIMAB [Suspect]
     Active Substance: RITUXIMAB
     Indication: Burkitt^s lymphoma
     Dosage: 375 MG/M2 (DAY 2, 14, 29, AND 36 INDUCTION DOSE)
  7. VINCRISTINE SULFATE [Suspect]
     Active Substance: VINCRISTINE SULFATE
     Indication: Burkitt^s lymphoma
     Dosage: 2 MG TOTAL DOSE (DAY 0 INDUCTION DOSE)
     Route: 040
  8. VINCRISTINE SULFATE [Suspect]
     Active Substance: VINCRISTINE SULFATE
     Dosage: 2 MG TOTAL DOSE (DAY 36 INDUCTION DOSE)
     Route: 040
  9. CYCLOPHOSPHAMIDE [Suspect]
     Active Substance: CYCLOPHOSPHAMIDE
     Indication: Burkitt^s lymphoma
     Dosage: 500 MG/M2, OVER 1 HR INFUSION (DAY 0 INDUCTION DOSE)
  10. CYCLOPHOSPHAMIDE [Suspect]
     Active Substance: CYCLOPHOSPHAMIDE
     Dosage: 500 MG/M2, OVER 1 HOUR INFUSION (DAY 1 INDUCTION DOSE)
  11. ETOPOSIDE [Suspect]
     Active Substance: ETOPOSIDE
     Indication: Burkitt^s lymphoma
     Dosage: 250 MG/M2 EVERY 12 HOURS (DAY 15 INDUCTION DOSE)
  12. METHYLPREDNISOLONE [Suspect]
     Active Substance: METHYLPREDNISOLONE
     Dosage: 0.5-1 MG/KG/D I.V. (-2; -1; 0 DAY DOSE  INDUCTION
     Route: 042
  13. LEUCOVORIN CALCIUM [Suspect]
     Active Substance: LEUCOVORIN CALCIUM
     Indication: Burkitt^s lymphoma
     Dosage: (RESCUE THERAPY DAY 7, 21 INDUCTION PHASE)
  14. HYDROCORTISONE [Suspect]
     Active Substance: HYDROCORTISONE
     Indication: Burkitt^s lymphoma
     Dosage: 40 MG  ON DAYS 5,19 ,AND 33
     Route: 037

REACTIONS (1)
  - Sepsis [Fatal]
